FAERS Safety Report 8219195-7 (Version None)
Quarter: 2012Q1

REPORT INFORMATION
  Report Type: 
  Country: None (occurrence: None)
  Receive Date: 20120307
  Receipt Date: 20091113
  Transmission Date: 20120608
  Serious: No
  Sender: FDA-Public Use
  Company Number: PHEH2009US16425

PATIENT
  Age: 53 Year
  Sex: Male

DRUGS (1)
  1. AFINITOR [Suspect]
     Indication: METASTATIC RENAL CELL CARCINOMA
     Dosage: 10 MG, DAILY, ORAL 5 MG, UNK, ORAL
     Route: 048

REACTIONS (3)
  - DRUG INTOLERANCE [None]
  - NEUTROPENIA [None]
  - FATIGUE [None]
